FAERS Safety Report 7352503-8 (Version None)
Quarter: 2011Q1

REPORT INFORMATION
  Report Type: 
  Country: None (occurrence: None)
  Receive Date: 20110315
  Receipt Date: 20110309
  Transmission Date: 20110831
  Serious: Yes (Other)
  Sender: FDA-Public Use
  Company Number: MX-PFIZER INC-2011053408

PATIENT
  Sex: Female

DRUGS (1)
  1. LINEZOLID [Suspect]
     Dosage: 200 MG, 2X/DAY
     Route: 042
     Dates: start: 20110205

REACTIONS (1)
  - TOXIC EPIDERMAL NECROLYSIS [None]
